FAERS Safety Report 6105073-6 (Version None)
Quarter: 2009Q1

REPORT INFORMATION
  Report Type: 
  Country: None (occurrence: None)
  Receive Date: 20090306
  Receipt Date: 20090304
  Transmission Date: 20090719
  Serious: Yes (Disabling)
  Sender: FDA-Public Use
  Company Number: JP-BAYER-200910064BYL

PATIENT
  Age: 82 Year
  Sex: Male
  Weight: 57 kg

DRUGS (1)
  1. EOB PRIMOVIST INJ. SYRINGE [Suspect]
     Indication: HEPATIC NEOPLASM MALIGNANT
     Dosage: TOTAL DAILY DOSE: 5.9 ML
     Route: 042
     Dates: start: 20081028, end: 20081028

REACTIONS (1)
  - RENAL IMPAIRMENT [None]
